FAERS Safety Report 11687147 (Version 2)
Quarter: 2015Q4

REPORT INFORMATION
  Report Type: Spontaneous
  Country: DE (occurrence: DE)
  Receive Date: 20151030
  Receipt Date: 20151110
  Transmission Date: 20160304
  Serious: Yes (Other)
  Sender: FDA-Public Use
  Company Number: DE-JNJFOC-20151019019

PATIENT
  Age: 46 Year
  Sex: Female
  Weight: 72 kg

DRUGS (1)
  1. REMICADE [Suspect]
     Active Substance: INFLIXIMAB
     Indication: CROHN^S DISEASE
     Route: 042
     Dates: start: 20070327

REACTIONS (5)
  - Nephrolithiasis [Unknown]
  - Ureteric stenosis [Not Recovered/Not Resolved]
  - Renal impairment [Unknown]
  - Pyelonephritis [Not Recovered/Not Resolved]
  - Calculus urethral [Not Recovered/Not Resolved]

NARRATIVE: CASE EVENT DATE: 20150921
